FAERS Safety Report 17928057 (Version 3)
Quarter: 2020Q3

REPORT INFORMATION
  Report Type: Report from Study
  Country: JP (occurrence: JP)
  Receive Date: 20200623
  Receipt Date: 20200917
  Transmission Date: 20201103
  Serious: Yes (Other)
  Sender: FDA-Public Use
  Company Number: JP-GLAXOSMITHKLINE-JP2020JPN103812

PATIENT
  Age: 70 Year
  Sex: Female
  Weight: 46 kg

DRUGS (9)
  1. TAKECAB [Concomitant]
     Active Substance: VONOPRAZAN FUMARATE
     Indication: PROPHYLAXIS AGAINST GASTROINTESTINAL ULCER
     Dosage: UNK
  2. PREDNISOLONE. [Suspect]
     Active Substance: PREDNISOLONE
     Dosage: 2.5 UNK
     Route: 048
     Dates: start: 20190308, end: 20190509
  3. PREDNISOLONE. [Suspect]
     Active Substance: PREDNISOLONE
     Dosage: 2.5 MG, 1D
     Dates: start: 20190705
  4. PREDNISOLONE. [Suspect]
     Active Substance: PREDNISOLONE
     Dosage: 1.25 MG, 1D
     Route: 048
     Dates: start: 20190510, end: 20190704
  5. PREDNISOLONE. [Suspect]
     Active Substance: PREDNISOLONE
     Indication: SYSTEMIC LUPUS ERYTHEMATOSUS
     Dosage: 5 MG, 1D
     Route: 048
     Dates: start: 20190110, end: 20190307
  6. THYRADIN (LEVOTHYROXINE SODIUM) [Concomitant]
     Dosage: UNK
  7. BELIMUMAB [Suspect]
     Active Substance: BELIMUMAB
     Dosage: 10 MG/KG, 1D
     Route: 041
     Dates: start: 20190307, end: 20190606
  8. EDIROL [Concomitant]
     Active Substance: ELDECALCITOL
     Dosage: UNK
  9. BELIMUMAB [Suspect]
     Active Substance: BELIMUMAB
     Indication: SYSTEMIC LUPUS ERYTHEMATOSUS
     Dosage: 10 MG/KG, 1D
     Route: 041
     Dates: start: 20190110, end: 20190207

REACTIONS (2)
  - Polyarthritis [Recovered/Resolved]
  - Condition aggravated [Recovered/Resolved]
